FAERS Safety Report 8762728 (Version 1)
Quarter: 2012Q4

REPORT INFORMATION
  Report Type: 
  Country: RU (occurrence: RU)
  Receive Date: 20120831
  Receipt Date: 20120831
  Transmission Date: 20130627
  Serious: Yes (Other)
  Sender: FDA-Public Use
  Company Number: RU-ROCHE-CID000000002130400

PATIENT
  Sex: Male

DRUGS (1)
  1. MABTHERA [Suspect]
     Indication: HEPATITIS B

REACTIONS (3)
  - Sepsis [Unknown]
  - Pneumonia [Unknown]
  - Venous thrombosis limb [Unknown]
